FAERS Safety Report 22212243 (Version 1)
Quarter: 2023Q2

REPORT INFORMATION
  Report Type: Spontaneous
  Country: CN (occurrence: CN)
  Receive Date: 20230414
  Receipt Date: 20230414
  Transmission Date: 20230722
  Serious: Yes (Hospitalization, Other)
  Sender: FDA-Public Use
  Company Number: CN-PFIZER INC-202300147851

PATIENT
  Age: 79 Year
  Sex: Male

DRUGS (4)
  1. CEFOPERAZONE SODIUM\SULBACTAM SODIUM [Suspect]
     Active Substance: CEFOPERAZONE SODIUM\SULBACTAM SODIUM
     Indication: Chronic obstructive pulmonary disease
     Dosage: 4 G GUTTAE EVERY 12 HOURS
     Route: 042
     Dates: start: 202108
  2. CEFOPERAZONE SODIUM\SULBACTAM SODIUM [Suspect]
     Active Substance: CEFOPERAZONE SODIUM\SULBACTAM SODIUM
     Indication: Respiratory tract infection
  3. PIPERACILLIN SODIUM\TAZOBACTAM SODIUM [Suspect]
     Active Substance: PIPERACILLIN SODIUM\TAZOBACTAM SODIUM
     Indication: Chronic obstructive pulmonary disease
     Dosage: 4.5 G, 3X/DAY (GUTTAE EVERY 8 HOURS)
     Route: 042
     Dates: start: 202007
  4. PIPERACILLIN SODIUM\TAZOBACTAM SODIUM [Suspect]
     Active Substance: PIPERACILLIN SODIUM\TAZOBACTAM SODIUM
     Indication: Respiratory tract infection
     Dosage: 4.5 G, 3X/DAY (GUTTAE EVERY 8 HOURS)
     Route: 042
     Dates: start: 202103

REACTIONS (2)
  - Thrombocytopenia [Recovered/Resolved]
  - Cross sensitivity reaction [Unknown]
